FAERS Safety Report 4649351-6 (Version None)
Quarter: 2005Q2

REPORT INFORMATION
  Report Type: 
  Country: None (occurrence: None)
  Receive Date: 20050429
  Receipt Date: 20050420
  Transmission Date: 20051028
  Serious: Yes (Death)
  Sender: FDA-Public Use
  Company Number: JP-ABBOTT-05P-087-0297969-00

PATIENT
  Age: 58 Year
  Sex: Male

DRUGS (7)
  1. CEFZON CAPSULES [Suspect]
     Indication: INFLUENZA
     Route: 048
     Dates: start: 20050223, end: 20050225
  2. CEFZON CAPSULES [Suspect]
     Indication: PHARYNGITIS
  3. OSELTAMIVIR [Suspect]
     Indication: INFLUENZA
     Route: 048
     Dates: start: 20050223, end: 20050225
  4. OSELTAMIVIR [Suspect]
     Indication: PHARYNGITIS
  5. PL GRAN. [Suspect]
     Indication: INFLUENZA
     Route: 048
     Dates: start: 20050223, end: 20050225
  6. PL GRAN. [Suspect]
     Indication: PHARYNGITIS
  7. KAKKON-TO [Concomitant]
     Indication: DRUG USE FOR UNKNOWN INDICATION
     Dosage: FINE GRANULE
     Dates: start: 20050223, end: 20050225

REACTIONS (2)
  - THIRST [None]
  - TOXIC EPIDERMAL NECROLYSIS [None]
